FAERS Safety Report 17797266 (Version 1)
Quarter: 2020Q2

REPORT INFORMATION
  Report Type: Spontaneous
  Country: US (occurrence: US)
  Receive Date: 20200517
  Receipt Date: 20200517
  Transmission Date: 20200714
  Serious: Yes (Other)
  Sender: FDA-Public Use
  Company Number: None

PATIENT
  Age: 46 Year
  Sex: Female
  Weight: 70 kg

DRUGS (12)
  1. REMDESIVIR. [Suspect]
     Active Substance: REMDESIVIR
     Indication: RESPIRATORY FAILURE
     Route: 040
     Dates: start: 20200513, end: 20200516
  2. ATORVASTATIN [Concomitant]
     Active Substance: ATORVASTATIN
     Dates: start: 20200511
  3. MELATONIN [Concomitant]
     Active Substance: MELATONIN
     Dates: start: 20200511
  4. NOREPINEPHRINE. [Concomitant]
     Active Substance: NOREPINEPHRINE
     Dates: start: 20200511
  5. REMDESIVIR. [Suspect]
     Active Substance: REMDESIVIR
     Indication: COVID-19
     Route: 040
     Dates: start: 20200513, end: 20200516
  6. FENTANYL. [Concomitant]
     Active Substance: FENTANYL
     Dates: start: 20200512
  7. INSULIN [Concomitant]
     Active Substance: INSULIN NOS
     Dates: start: 20200511
  8. METHYLPREDNISLONE [Concomitant]
     Dates: start: 20200511
  9. ZINC. [Concomitant]
     Active Substance: ZINC
     Dates: start: 20200512
  10. ASCORBIC ACID. [Concomitant]
     Active Substance: ASCORBIC ACID
     Dates: start: 20200511
  11. ENOXAPARIN [Concomitant]
     Active Substance: ENOXAPARIN
     Dates: start: 20200511
  12. FAMOTIDINE. [Concomitant]
     Active Substance: FAMOTIDINE
     Dates: start: 20200514

REACTIONS (1)
  - Seizure [None]

NARRATIVE: CASE EVENT DATE: 20200515
